FAERS Safety Report 8244880-0 (Version None)
Quarter: 2012Q1

REPORT INFORMATION
  Report Type: 
  Country: None (occurrence: None)
  Receive Date: 20120329
  Receipt Date: 20110727
  Transmission Date: 20120608
  Serious: No
  Sender: FDA-Public Use
  Company Number: US-MYLANLABS-2011S1015733

PATIENT
  Sex: Female

DRUGS (7)
  1. GABAPENTIN [Concomitant]
  2. METFORMIN HCL [Concomitant]
  3. INSULIN [Concomitant]
  4. VITAMIN B COMPLEX CAP [Concomitant]
     Dosage: INJECTION
  5. MULTI-VITAMINS [Concomitant]
  6. FENTANYL-100 [Suspect]
     Indication: PAIN
     Dosage: Q72H
     Route: 062
     Dates: start: 20100101
  7. ATENOLOL [Concomitant]

REACTIONS (3)
  - PAIN [None]
  - DRUG INEFFECTIVE [None]
  - DRUG WITHDRAWAL SYNDROME [None]
